FAERS Safety Report 14918268 (Version 1)
Quarter: 2018Q2

REPORT INFORMATION
  Report Type: Spontaneous
  Country: ES (occurrence: ES)
  Receive Date: 20180521
  Receipt Date: 20180521
  Transmission Date: 20180711
  Serious: Yes (Hospitalization)
  Sender: FDA-Public Use
  Company Number: PHHY2018ES002599

PATIENT
  Age: 55 Year
  Sex: Male

DRUGS (5)
  1. FUROSEMID [Interacting]
     Active Substance: FUROSEMIDE
     Dosage: 40 MG, UNK
     Route: 048
  2. LORAZEPAM. [Concomitant]
     Active Substance: LORAZEPAM
     Indication: HEPATIC CIRRHOSIS
     Dosage: 1 MG, QD
     Route: 048
     Dates: start: 201501, end: 20150108
  3. ESPIRONOLACTONA [Interacting]
     Active Substance: SPIRONOLACTONE
     Dosage: 100 MG, UNK
     Route: 048
  4. FUROSEMID [Suspect]
     Active Substance: FUROSEMIDE
     Indication: HEPATIC CIRRHOSIS
     Dosage: 80 MG, QD
     Route: 048
     Dates: start: 201511, end: 20160108
  5. ESPIRONOLACTONA [Interacting]
     Active Substance: SPIRONOLACTONE
     Indication: HEPATIC CIRRHOSIS
     Dosage: 200 MG, QD
     Route: 048
     Dates: start: 20151114, end: 20160108

REACTIONS (1)
  - Hepatic encephalopathy [Recovered/Resolved]

NARRATIVE: CASE EVENT DATE: 20160106
